FAERS Safety Report 4936765-X (Version None)
Quarter: 2006Q1

REPORT INFORMATION
  Report Type: 
  Country: None (occurrence: None)
  Receive Date: 20060302
  Receipt Date: 20060215
  Transmission Date: 20060701
  Serious: Yes (Death, Hospitalization)
  Sender: FDA-Public Use
  Company Number: GXKR2006CA00989

PATIENT
  Sex: Male

DRUGS (1)
  1. CIPROFLOXACIN (NGX) (CIPROFLOXACIN) TABLET [Suspect]
     Indication: GASTRIC DISORDER
     Dosage: ORAL
     Route: 048

REACTIONS (6)
  - AUTOIMMUNE DISORDER [None]
  - FEAR [None]
  - GENERALISED OEDEMA [None]
  - HYPERSENSITIVITY [None]
  - RASH [None]
  - SKIN REACTION [None]
